FAERS Safety Report 9272543 (Version 3)
Quarter: 2013Q3

REPORT INFORMATION
  Report Type: Report from Study
  Country: DE (occurrence: DE)
  Receive Date: 20130506
  Receipt Date: 20130814
  Transmission Date: 20140515
  Serious: Yes (Hospitalization)
  Sender: FDA-Public Use
  Company Number: DE-ASTRAZENECA-2013SE30226

PATIENT
  Age: 24320 Day
  Sex: Male

DRUGS (8)
  1. AZD6140 [Suspect]
     Indication: CORONARY ARTERY DISEASE
     Route: 048
     Dates: start: 20120203, end: 20120415
  2. ASA [Suspect]
     Route: 048
  3. TAMSULOSIN [Concomitant]
     Indication: BENIGN PROSTATIC HYPERPLASIA
     Route: 048
  4. BISOPROLOL [Concomitant]
     Indication: HYPERTENSION
     Route: 048
  5. PANTOPRAZOL [Concomitant]
     Indication: GASTRITIS EROSIVE
     Route: 048
  6. TRIAMCINOLON [Concomitant]
     Indication: BACK PAIN
     Route: 061
     Dates: start: 20120601
  7. LISINOPRIL [Concomitant]
     Indication: HYPERTENSION
     Route: 048
  8. FLUVASTATION [Concomitant]
     Indication: HYPERCHOLESTEROLAEMIA
     Route: 048

REACTIONS (1)
  - Gastritis erosive [Recovered/Resolved]
